FAERS Safety Report 11257653 (Version 1)
Quarter: 2015Q3

REPORT INFORMATION
  Report Type: Spontaneous
  Country: US (occurrence: US)
  Receive Date: 20150710
  Receipt Date: 20150710
  Transmission Date: 20151125
  Serious: No
  Sender: FDA-Public Use
  Company Number: US-TEVA-542718USA

PATIENT
  Sex: Male

DRUGS (1)
  1. OMEGA-3 ACIDS [Suspect]
     Active Substance: OMEGA-3 FATTY ACIDS
     Dosage: 2 GRAM DAILY;
     Route: 065

REACTIONS (9)
  - Nausea [Recovered/Resolved]
  - Malaise [Recovered/Resolved]
  - Abdominal pain [Recovered/Resolved]
  - Dizziness [Recovered/Resolved]
  - Vomiting [Recovered/Resolved]
  - Diarrhoea [Recovered/Resolved]
  - Constipation [Recovered/Resolved]
  - Product physical issue [Unknown]
  - Abdominal discomfort [Recovered/Resolved]

NARRATIVE: CASE EVENT DATE: 201502
